FAERS Safety Report 12974024 (Version 1)
Quarter: 2016Q4

REPORT INFORMATION
  Report Type: Report from Study
  Country: AU (occurrence: AU)
  Receive Date: 20161124
  Receipt Date: 20161124
  Transmission Date: 20170207
  Serious: Yes (Other)
  Sender: FDA-Public Use
  Company Number: AU-BIOGEN-2016BI00320912

PATIENT
  Age: 42 Year
  Sex: Female

DRUGS (3)
  1. PLEGRIDY [Suspect]
     Active Substance: PEGINTERFERON BETA-1A
     Indication: MULTIPLE SCLEROSIS
     Route: 058
     Dates: start: 201506
  2. PLEGRIDY [Suspect]
     Active Substance: PEGINTERFERON BETA-1A
     Route: 058
  3. PLEGRIDY [Suspect]
     Active Substance: PEGINTERFERON BETA-1A
     Route: 058

REACTIONS (8)
  - Malaise [Unknown]
  - Ageusia [Unknown]
  - Blood glucose increased [Unknown]
  - Chapped lips [Unknown]
  - Pyrexia [Unknown]
  - Weight decreased [Unknown]
  - Anosmia [Unknown]
  - Fungal skin infection [Unknown]

NARRATIVE: CASE EVENT DATE: 201609
